FAERS Safety Report 21124491 (Version 1)
Quarter: 2022Q3

REPORT INFORMATION
  Report Type: Spontaneous
  Country: BR (occurrence: BR)
  Receive Date: 20220725
  Receipt Date: 20220725
  Transmission Date: 20221027
  Serious: Yes (Hospitalization, Other)
  Sender: FDA-Public Use
  Company Number: BR-SUN PHARMACEUTICAL INDUSTRIES LTD-2022R1-345250

PATIENT
  Weight: .98 kg

DRUGS (3)
  1. CEFTAZIDIME [Suspect]
     Active Substance: CEFTAZIDIME
     Indication: Antibiotic therapy
     Dosage: UNK
     Route: 064
  2. METHOTREXATE [Suspect]
     Active Substance: METHOTREXATE
     Indication: Lung disorder
     Dosage: UNK
     Route: 064
  3. OXACILLIN [Suspect]
     Active Substance: OXACILLIN SODIUM
     Indication: Antibiotic therapy
     Dosage: UNK
     Route: 064

REACTIONS (3)
  - Premature baby [Unknown]
  - Low birth weight baby [Unknown]
  - Foetal exposure during pregnancy [Unknown]
